FAERS Safety Report 19249859 (Version 3)
Quarter: 2021Q3

REPORT INFORMATION
  Report Type: Spontaneous
  Country: IT (occurrence: IT)
  Receive Date: 20210513
  Receipt Date: 20210728
  Transmission Date: 20211014
  Serious: Yes (Other)
  Sender: FDA-Public Use
  Company Number: IT-AMGEN-ITASP2021068059

PATIENT
  Age: 74 Year

DRUGS (1)
  1. MVASI [Suspect]
     Active Substance: BEVACIZUMAB-AWWB
     Indication: AGE-RELATED MACULAR DEGENERATION
     Dosage: 0.5 MICROGRAM, CYCLICAL
     Route: 065
     Dates: start: 20201127, end: 20210324

REACTIONS (3)
  - Drug ineffective [Recovering/Resolving]
  - Macular oedema [Recovering/Resolving]
  - Product substitution [Recovering/Resolving]

NARRATIVE: CASE EVENT DATE: 20210421
